FAERS Safety Report 4769958-5 (Version None)
Quarter: 2005Q3

REPORT INFORMATION
  Report Type: 
  Country: None (occurrence: None)
  Receive Date: 20050914
  Receipt Date: 20050905
  Transmission Date: 20060218
  Serious: Yes (Death)
  Sender: FDA-Public Use
  Company Number: HQWYE228515JUL05

PATIENT
  Sex: Male

DRUGS (1)
  1. PANTOLOC (PANTOPRAZOLE, TABLET, DELAYED RELEASE) [Suspect]
     Indication: GASTROINTESTINAL DISORDER
     Dosage: 40 MG
     Route: 048

REACTIONS (1)
  - INTESTINAL OBSTRUCTION [None]
